FAERS Safety Report 20379086 (Version 8)
Quarter: 2022Q2

REPORT INFORMATION
  Report Type: Spontaneous
  Country: JP (occurrence: JP)
  Receive Date: 20220126
  Receipt Date: 20220629
  Transmission Date: 20220721
  Serious: Yes (Hospitalization, Other)
  Sender: FDA-Public Use
  Company Number: JP-NBI-J202122321BIPI

PATIENT
  Age: 74 Year
  Sex: Male

DRUGS (3)
  1. OFEV [Suspect]
     Active Substance: NINTEDANIB
     Indication: Interstitial lung disease
     Route: 048
     Dates: start: 20211014, end: 20220101
  2. OFEV [Suspect]
     Active Substance: NINTEDANIB
     Route: 048
     Dates: start: 20220112
  3. PREDNISOLONE [Suspect]
     Active Substance: PREDNISOLONE
     Indication: Interstitial lung disease
     Route: 048

REACTIONS (33)
  - Platelet count decreased [Recovered/Resolved]
  - Haemorrhagic diathesis [Recovered/Resolved]
  - Pneumothorax [Recovered/Resolved]
  - Decreased appetite [Recovered/Resolved]
  - Tongue discolouration [Not Recovered/Not Resolved]
  - Contusion [Unknown]
  - Pneumonia [Unknown]
  - Herpes zoster [Recovering/Resolving]
  - Hyperglycaemia [Recovered/Resolved]
  - Fall [Recovered/Resolved]
  - Skin abrasion [Recovered/Resolved]
  - Cognitive disorder [Not Recovered/Not Resolved]
  - Mental disorder [Not Recovered/Not Resolved]
  - Body temperature decreased [Recovered/Resolved]
  - Constipation [Not Recovered/Not Resolved]
  - White blood cell count increased [Unknown]
  - Productive cough [Not Recovered/Not Resolved]
  - Dysphagia [Recovered/Resolved]
  - Chest pain [Recovering/Resolving]
  - Blood cholesterol increased [Not Recovered/Not Resolved]
  - Dysphagia [Not Recovered/Not Resolved]
  - Nausea [Recovered/Resolved]
  - Chest pain [Recovered/Resolved]
  - Decubitus ulcer [Recovering/Resolving]
  - Faeces soft [Recovered/Resolved]
  - Diarrhoea [Recovering/Resolving]
  - Arrhythmia [Recovering/Resolving]
  - Liver function test increased [Not Recovered/Not Resolved]
  - Anaemia [Not Recovered/Not Resolved]
  - Bronchitis [Not Recovered/Not Resolved]
  - Nocturia [Not Recovered/Not Resolved]
  - Pleural effusion [Not Recovered/Not Resolved]
  - Eosinophil count increased [Unknown]

NARRATIVE: CASE EVENT DATE: 20211117
